FAERS Safety Report 7009474-3 (Version None)
Quarter: 2010Q3

REPORT INFORMATION
  Report Type: 
  Country: None (occurrence: None)
  Receive Date: 20100923
  Receipt Date: 20100909
  Transmission Date: 20110219
  Serious: Yes (Hospitalization)
  Sender: FDA-Public Use
  Company Number: PHEH2010US00477

PATIENT
  Sex: Female

DRUGS (9)
  1. EXJADE [Suspect]
     Indication: SICKLE CELL ANAEMIA
     Dosage: 500 MG, QD
     Route: 048
  2. FOLIC ACID [Concomitant]
     Dosage: 1 MG, DAILY
     Route: 048
  3. LOVENOX [Concomitant]
     Indication: SUPERIOR VENA CAVAL OCCLUSION
     Dosage: 60 MG SQ Q12
  4. PROTONIX [Concomitant]
     Dosage: 40 MG DAILY
  5. HYDROXYUREA [Concomitant]
     Indication: SICKLE CELL ANAEMIA
     Dosage: 1500 MG, DAILY
     Route: 048
  6. PHENERGAN [Concomitant]
     Indication: NAUSEA
     Dosage: 25 MG, PRN
     Route: 048
  7. OXYCONTIN [Concomitant]
     Indication: PAIN
     Dosage: 80 MG, Q12H
  8. OXYCODONE [Concomitant]
     Indication: PAIN
     Dosage: 5-10MG, Q4-6H
     Route: 048
  9. MULTI-VITAMIN [Concomitant]

REACTIONS (6)
  - HAEMATOCRIT DECREASED [None]
  - HAEMOGLOBIN DECREASED [None]
  - INFECTION [None]
  - PAIN [None]
  - SICKLE CELL ANAEMIA WITH CRISIS [None]
  - WHITE BLOOD CELL COUNT INCREASED [None]
